FAERS Safety Report 16170319 (Version 1)
Quarter: 2019Q2

REPORT INFORMATION
  Report Type: Spontaneous
  Country: US (occurrence: US)
  Receive Date: 20190408
  Receipt Date: 20190408
  Transmission Date: 20190711
  Serious: No
  Sender: FDA-Public Use
  Company Number: US-TEVA-2019-US-1034792

PATIENT
  Age: 70 Year
  Sex: Female

DRUGS (1)
  1. METOPROLOL ACTAVIS [Suspect]
     Active Substance: METOPROLOL
     Dates: start: 20181208

REACTIONS (4)
  - Sleep disorder [Recovering/Resolving]
  - Pain in extremity [Recovering/Resolving]
  - Dysphonia [Recovering/Resolving]
  - Tremor [Recovering/Resolving]

NARRATIVE: CASE EVENT DATE: 20181208
